FAERS Safety Report 25723202 (Version 2)
Quarter: 2025Q4

REPORT INFORMATION
  Report Type: Spontaneous
  Country: US (occurrence: US)
  Receive Date: 20250825
  Receipt Date: 20251106
  Transmission Date: 20260118
  Serious: Yes (Hospitalization, Disabling, Other)
  Sender: NOVO NORDISK
  Company Number: US-NOVOPROD-1503961

PATIENT
  Age: 60 Year
  Sex: Male
  Weight: 114 kg

DRUGS (3)
  1. WEGOVY [Suspect]
     Active Substance: SEMAGLUTIDE
     Indication: Weight control
     Dosage: UNK
     Route: 058
     Dates: start: 20240815
  2. WEGOVY [Suspect]
     Active Substance: SEMAGLUTIDE
     Dosage: 1.7 MG, QW
     Route: 058
     Dates: end: 20250727
  3. LISINOPRIL [Concomitant]
     Active Substance: LISINOPRIL
     Indication: Hypertension
     Dosage: UNK

REACTIONS (8)
  - Loss of consciousness [Unknown]
  - Loss of consciousness [Unknown]
  - Loss of consciousness [Unknown]
  - Loss of consciousness [Not Recovered/Not Resolved]
  - Arterial haemorrhage [Not Recovered/Not Resolved]
  - Fall [Unknown]
  - Ankle fracture [Recovering/Resolving]
  - Orthostatic hypotension [Unknown]

NARRATIVE: CASE EVENT DATE: 20250101
